FAERS Safety Report 6538099-9 (Version None)
Quarter: 2010Q1

REPORT INFORMATION
  Report Type: 
  Country: None (occurrence: None)
  Receive Date: 20100114
  Receipt Date: 20100108
  Transmission Date: 20100710
  Serious: Yes (Hospitalization, Other)
  Sender: FDA-Public Use
  Company Number: US-ROCHE-627640

PATIENT
  Sex: Male
  Weight: 65.8 kg

DRUGS (9)
  1. CAPECITABINE [Suspect]
     Indication: HEAD AND NECK CANCER
     Dosage: DAY 1, CO-INDICATION: TONGUE CANCER
     Route: 048
     Dates: start: 20090403
  2. CAPECITABINE [Suspect]
     Dosage: DAY 2
     Route: 048
     Dates: start: 20090316
  3. CAPECITABINE [Suspect]
     Dosage: FOR 14 DAYS, 2 WEEKS ON, 1 WEEK OFF.
     Route: 048
     Dates: start: 20090326, end: 20090611
  4. CAPECITABINE [Suspect]
     Route: 048
     Dates: end: 20100104
  5. FLUOROURACIL [Concomitant]
     Dosage: FORM: INFUSION
  6. IRINOTECAN HCL [Concomitant]
     Route: 042
     Dates: start: 20090326
  7. DECADRON [Concomitant]
     Dosage: ROUTE: IO
     Route: 050
     Dates: start: 20090326
  8. ALOXI [Concomitant]
     Indication: VOMITING
     Dosage: ROUTE: IOP, DRUG: ALORPI
     Route: 050
     Dates: start: 20090326
  9. CISPLATIN [Concomitant]
     Dates: start: 20080810

REACTIONS (9)
  - BLOOD PRESSURE DECREASED [None]
  - DEHYDRATION [None]
  - DIARRHOEA [None]
  - DIZZINESS [None]
  - FLUID INTAKE REDUCED [None]
  - MALIGNANT NEOPLASM PROGRESSION [None]
  - NAUSEA [None]
  - TRANSFUSION [None]
  - VOMITING [None]
